FAERS Safety Report 16899928 (Version 1)
Quarter: 2019Q4

REPORT INFORMATION
  Report Type: Spontaneous
  Country: US (occurrence: US)
  Receive Date: 20190815
  Receipt Date: 20190815
  Transmission Date: 20200122
  Serious: Yes (Hospitalization)
  Sender: FDA-Public Use
  Company Number: None

PATIENT
  Age: 55 Year
  Sex: Male
  Weight: 110.9 kg

DRUGS (2)
  1. VELCADE [Suspect]
     Active Substance: BORTEZOMIB
     Dates: end: 20171214
  2. LENALIDOMIDE (CC-5013) [Suspect]
     Active Substance: LENALIDOMIDE
     Dates: end: 20180208

REACTIONS (4)
  - Rhegmatogenous retinal detachment [None]
  - Retinal tear [None]
  - Vitreous haemorrhage [None]
  - Retinal degeneration [None]

NARRATIVE: CASE EVENT DATE: 20180124
